FAERS Safety Report 15277163 (Version 2)
Quarter: 2018Q4

REPORT INFORMATION
  Report Type: Spontaneous
  Country: FR (occurrence: FR)
  Receive Date: 20180814
  Receipt Date: 20181206
  Transmission Date: 20190204
  Serious: No
  Sender: FDA-Public Use
  Company Number: FR-JAZZ-2018-FR-011543

PATIENT

DRUGS (9)
  1. XYREM [Suspect]
     Active Substance: SODIUM OXYBATE
     Indication: HYPERGLYCINAEMIA
     Dosage: 8 G, UNK
     Route: 048
     Dates: start: 20180629, end: 20180630
  2. KEPPRA [Concomitant]
     Active Substance: LEVETIRACETAM
  3. CARBAGLU [Concomitant]
     Active Substance: CARGLUMIC ACID
  4. ISOLEUCINE [Concomitant]
     Active Substance: ISOLEUCINE
  5. VALINE [Concomitant]
     Active Substance: VALINE
  6. UVEDOSE [Concomitant]
     Active Substance: CHOLECALCIFEROL
  7. LEVOCARNITINE. [Concomitant]
     Active Substance: LEVOCARNITINE
     Dosage: 1 G, BID
  8. METRONIDAZOLE. [Concomitant]
     Active Substance: METRONIDAZOLE
  9. ENALAPRIL [Concomitant]
     Active Substance: ENALAPRIL

REACTIONS (2)
  - Hypersomnia [Recovered/Resolved]
  - Confusional state [Recovered/Resolved]

NARRATIVE: CASE EVENT DATE: 2018
